FAERS Safety Report 7059769-2 (Version None)
Quarter: 2010Q4

REPORT INFORMATION
  Report Type: 
  Country: None (occurrence: None)
  Receive Date: 20101025
  Receipt Date: 20101013
  Transmission Date: 20110411
  Serious: Yes (Other)
  Sender: FDA-Public Use
  Company Number: US-PFIZER INC-2010112820

PATIENT
  Sex: Female

DRUGS (6)
  1. GEODON [Suspect]
     Dosage: UNK
  2. LAMICTAL [Concomitant]
     Dosage: UNK
  3. CITALOPRAM [Concomitant]
     Dosage: UNK
  4. PRAZOSIN HYDROCHLORIDE [Concomitant]
     Dosage: UNK
  5. ASENAPINE [Concomitant]
     Dosage: UNK
     Dates: start: 20100401
  6. ULTRAM [Concomitant]
     Dosage: UNK

REACTIONS (2)
  - HEPATIC ENZYME INCREASED [None]
  - HEPATIC STEATOSIS [None]
